FAERS Safety Report 8479912-8 (Version None)
Quarter: 2012Q2

REPORT INFORMATION
  Report Type: 
  Country: None (occurrence: None)
  Receive Date: 20120629
  Receipt Date: 20120622
  Transmission Date: 20120825
  Serious: Yes (Hospitalization)
  Sender: FDA-Public Use
  Company Number: JP-BAXTER-2012BAX009496

PATIENT
  Sex: Male
  Weight: 66 kg

DRUGS (2)
  1. DIANEAL PD-2 W/ DEXTROSE 4.25% [Suspect]
     Route: 033
     Dates: start: 20100729
  2. EXTRANEAL [Suspect]
     Route: 033
     Dates: start: 20100729

REACTIONS (1)
  - ASTHENIA [None]
